FAERS Safety Report 4496598-8 (Version None)
Quarter: 2004Q4

REPORT INFORMATION
  Report Type: 
  Country: None (occurrence: None)
  Receive Date: 20041109
  Receipt Date: 20041029
  Transmission Date: 20050328
  Serious: Yes (Life-Threatening, Hospitalization)
  Sender: FDA-Public Use
  Company Number: 200420983GDDC

PATIENT
  Age: 80 Year
  Sex: Female
  Weight: 80 kg

DRUGS (9)
  1. CLEXANE [Suspect]
     Indication: THROMBOSIS PROPHYLAXIS
     Route: 058
     Dates: start: 20040809, end: 20040814
  2. IBUPROFEN [Suspect]
     Indication: PAIN
     Route: 048
     Dates: start: 20040809, end: 20040814
  3. RAMIPRIL [Suspect]
     Indication: HYPERTENSION
     Route: 048
     Dates: end: 20040811
  4. FUROSEMIDE [Suspect]
     Indication: CARDIAC FAILURE
     Route: 048
  5. SERETIDE [Concomitant]
     Dosage: DOSE: UNK
  6. PARACETAMOL [Concomitant]
  7. FLUCLOXACILLIN [Concomitant]
     Indication: CELLULITIS
     Dosage: DOSE: UNK
     Dates: start: 20040816, end: 20040823
  8. BENZYLPENICILLIN [Concomitant]
     Indication: CELLULITIS
     Dosage: DOSE: UNK
     Dates: start: 20040816, end: 20040823
  9. NYSTATIN [Concomitant]
     Route: 048

REACTIONS (11)
  - BLOOD CHLORIDE DECREASED [None]
  - BLOOD SODIUM DECREASED [None]
  - DEHYDRATION [None]
  - DUODENAL ULCER HAEMORRHAGE [None]
  - DUODENITIS [None]
  - GASTRIC ULCER [None]
  - GASTRITIS [None]
  - HIATUS HERNIA [None]
  - OESOPHAGITIS [None]
  - RENAL FAILURE ACUTE [None]
  - SEPSIS [None]
